FAERS Safety Report 21984686 (Version 1)
Quarter: 2023Q1

REPORT INFORMATION
  Report Type: Spontaneous
  Country: US (occurrence: US)
  Receive Date: 20230213
  Receipt Date: 20230213
  Transmission Date: 20230417
  Serious: Yes (Other)
  Sender: FDA-Public Use
  Company Number: US-ELI_LILLY_AND_COMPANY-US202302000877

PATIENT
  Sex: Female

DRUGS (5)
  1. HUMALOG JUNIOR KWIKPEN [Suspect]
     Active Substance: INSULIN LISPRO
     Indication: Type 1 diabetes mellitus
     Dosage: 0.5 U, UNKNOWN
     Route: 058
     Dates: start: 2019
  2. HUMALOG JUNIOR KWIKPEN [Suspect]
     Active Substance: INSULIN LISPRO
     Indication: Type 1 diabetes mellitus
     Dosage: 0.5 U, UNKNOWN
     Route: 058
     Dates: start: 2019
  3. HUMALOG JUNIOR KWIKPEN [Suspect]
     Active Substance: INSULIN LISPRO
     Dosage: 0.5 U, UNKNOWN
     Route: 058
  4. HUMALOG JUNIOR KWIKPEN [Suspect]
     Active Substance: INSULIN LISPRO
     Dosage: 0.5 U, UNKNOWN
     Route: 058
  5. HUMALOG JUNIOR KWIKPEN [Suspect]
     Active Substance: INSULIN LISPRO
     Dosage: 0.5 U, UNKNOWN
     Route: 058

REACTIONS (1)
  - Benign neoplasm of thyroid gland [Recovered/Resolved]

NARRATIVE: CASE EVENT DATE: 20220101
